FAERS Safety Report 17302317 (Version 9)
Quarter: 2021Q2

REPORT INFORMATION
  Report Type: Spontaneous
  Country: PT (occurrence: PT)
  Receive Date: 20200122
  Receipt Date: 20210525
  Transmission Date: 20210716
  Serious: Yes (Hospitalization, Other)
  Sender: FDA-Public Use
  Company Number: NVSC2019PT086466

PATIENT
  Age: 42 Year
  Sex: Male

DRUGS (6)
  1. ACETAMINOPHEN. [Concomitant]
     Active Substance: ACETAMINOPHEN
     Indication: SELF-MEDICATION
  2. ACETAMINOPHEN. [Concomitant]
     Active Substance: ACETAMINOPHEN
     Indication: ORTHOPAEDIC PROCEDURE
     Dosage: 1 G
     Route: 065
  3. IBUPROFEN. [Suspect]
     Active Substance: IBUPROFEN
     Indication: ORTHOPAEDIC PROCEDURE
     Dosage: 600 MG
     Route: 065
  4. IBUPROFEN. [Suspect]
     Active Substance: IBUPROFEN
     Indication: SELF-MEDICATION
  5. ETORICOXIB. [Suspect]
     Active Substance: ETORICOXIB
     Indication: ORTHOPAEDIC PROCEDURE
     Dosage: 180 MG, QD (60 MILLIGRAM, TID (PER 8 HOURS))
     Route: 048
     Dates: start: 201801
  6. ETORICOXIB. [Suspect]
     Active Substance: ETORICOXIB
     Indication: SURGERY

REACTIONS (12)
  - Pyrexia [Recovered/Resolved]
  - Restlessness [Recovered/Resolved]
  - Haematuria [Recovering/Resolving]
  - Hyperhidrosis [Recovered/Resolved]
  - Intentional product misuse [Unknown]
  - Viral infection [Unknown]
  - Leukocyturia [Recovering/Resolving]
  - Chills [Recovered/Resolved]
  - Tubulointerstitial nephritis [Recovered/Resolved]
  - Arthralgia [Recovered/Resolved]
  - Pyelonephritis acute [Recovering/Resolving]
  - Malaise [Recovered/Resolved]

NARRATIVE: CASE EVENT DATE: 201802
